FAERS Safety Report 23973272 (Version 1)
Quarter: 2024Q2

REPORT INFORMATION
  Report Type: Spontaneous
  Country: US (occurrence: None)
  Receive Date: 20240613
  Receipt Date: 20240613
  Transmission Date: 20240716
  Serious: No
  Sender: FDA-Public Use
  Company Number: None

PATIENT
  Sex: 0

DRUGS (1)
  1. SUBLOCADE [Suspect]
     Active Substance: BUPRENORPHINE

REACTIONS (8)
  - Injection site swelling [None]
  - Injection site discharge [None]
  - Incorrect dose administered [None]
  - Fatigue [None]
  - Restless legs syndrome [None]
  - Endodontic procedure [None]
  - Scab [None]
  - Erythema [None]

NARRATIVE: CASE EVENT DATE: 20240516
